FAERS Safety Report 9685047 (Version 2)
Quarter: 2014Q2

REPORT INFORMATION
  Report Type: Report from Study
  Country: CA (occurrence: CA)
  Receive Date: 20131113
  Receipt Date: 20140626
  Transmission Date: 20141212
  Serious: Yes (Other)
  Sender: FDA-Public Use
  Company Number: CA-JNJFOC-20131105219

PATIENT
  Sex: Male
  Weight: 63.5 kg

DRUGS (1)
  1. REMICADE [Suspect]
     Indication: CROHN^S DISEASE
     Dosage: LOADING DOSE
     Route: 042
     Dates: start: 20130910

REACTIONS (1)
  - Anal fistula [Unknown]
